FAERS Safety Report 6713774-1 (Version None)
Quarter: 2010Q2

REPORT INFORMATION
  Report Type: 
  Country: None (occurrence: None)
  Receive Date: 20100504
  Receipt Date: 20100416
  Transmission Date: 20101027
  Serious: Yes (Hospitalization, Other)
  Sender: FDA-Public Use
  Company Number: 7002105

PATIENT
  Sex: Female

DRUGS (1)
  1. REBIF [Suspect]
     Dosage: 44 MCG
     Dates: start: 20030523

REACTIONS (3)
  - DIABETES INSIPIDUS [None]
  - INTESTINAL OBSTRUCTION [None]
  - TRANSIENT ISCHAEMIC ATTACK [None]
